FAERS Safety Report 20682958 (Version 1)
Quarter: 2022Q2

REPORT INFORMATION
  Report Type: Spontaneous
  Country: JP (occurrence: JP)
  Receive Date: 20220407
  Receipt Date: 20220407
  Transmission Date: 20220721
  Serious: Yes (Other)
  Sender: FDA-Public Use
  Company Number: JP-AMNEAL PHARMACEUTICALS-2022-AMRX-00844

PATIENT
  Age: 6 Year
  Sex: Male

DRUGS (1)
  1. IMATINIB MESYLATE [Suspect]
     Active Substance: IMATINIB MESYLATE
     Indication: Philadelphia positive acute lymphocytic leukaemia
     Route: 065

REACTIONS (1)
  - Bone marrow necrosis [Recovered/Resolved]
